FAERS Safety Report 16305506 (Version 3)
Quarter: 2022Q2

REPORT INFORMATION
  Report Type: Spontaneous
  Country: US (occurrence: None)
  Receive Date: 20190513
  Receipt Date: 20220624
  Transmission Date: 20220721
  Serious: Yes (Disabling, Other)
  Sender: FDA-Public Use
  Company Number: 2019SE64006

PATIENT
  Age: 13655 Day
  Sex: Female
  Weight: 97.5 kg

DRUGS (42)
  1. NEXIUM [Suspect]
     Active Substance: ESOMEPRAZOLE MAGNESIUM
     Indication: Gastrooesophageal reflux disease
     Dosage: 1-2 TIMES DAILY
     Route: 048
     Dates: start: 2001, end: 2012
  2. NEXIUM 24HR [Suspect]
     Active Substance: ESOMEPRAZOLE MAGNESIUM
     Indication: Gastrooesophageal reflux disease
     Dosage: AS RECOMMENDED
     Route: 048
     Dates: start: 2014, end: 2018
  3. PRILOSEC [Suspect]
     Active Substance: OMEPRAZOLE MAGNESIUM
     Indication: Gastrooesophageal reflux disease
     Route: 048
     Dates: start: 1998, end: 2012
  4. PRILOSEC OTC [Suspect]
     Active Substance: OMEPRAZOLE MAGNESIUM
     Indication: Gastrooesophageal reflux disease
     Dosage: AS RECOMMENDED
     Route: 048
     Dates: start: 2003, end: 2018
  5. PREVACID [Suspect]
     Active Substance: LANSOPRAZOLE
     Indication: Gastrooesophageal reflux disease
     Dosage: 1-2 TIME DAILY
     Route: 065
     Dates: start: 1998, end: 2012
  6. PROTONIX [Suspect]
     Active Substance: PANTOPRAZOLE SODIUM
     Indication: Gastrooesophageal reflux disease
     Route: 065
     Dates: start: 1998, end: 2012
  7. PROTONIX [Suspect]
     Active Substance: PANTOPRAZOLE SODIUM
     Indication: Gastrooesophageal reflux disease
     Dosage: GENERIC
     Route: 065
     Dates: start: 2012, end: 2016
  8. PROTONIX [Suspect]
     Active Substance: PANTOPRAZOLE SODIUM
     Indication: Gastrooesophageal reflux disease
     Route: 065
     Dates: start: 20131226
  9. RABEPRAZOLE [Suspect]
     Active Substance: RABEPRAZOLE
     Indication: Gastrooesophageal reflux disease
     Route: 065
     Dates: start: 2002, end: 2003
  10. TMP/SMP [Concomitant]
     Indication: Infection
     Dates: start: 201612, end: 201701
  11. AMOXICILLIN [Concomitant]
     Active Substance: AMOXICILLIN
     Indication: Infection
     Dates: start: 201701, end: 201701
  12. CIPROFLOXACIN [Concomitant]
     Active Substance: CIPROFLOXACIN
     Indication: Infection
     Dates: start: 201705, end: 201705
  13. SPIRONOLACTONE [Concomitant]
     Active Substance: SPIRONOLACTONE
     Indication: Hypertension
     Dates: start: 201707, end: 201803
  14. HYDRALAZINE [Concomitant]
     Active Substance: HYDRALAZINE HYDROCHLORIDE
     Indication: Hypertension
     Dates: start: 201704, end: 201904
  15. DOXYCYCLINE [Concomitant]
     Active Substance: DOXYCYCLINE
     Indication: Infection
     Dates: start: 201905, end: 201906
  16. MOTRIN [Concomitant]
     Active Substance: IBUPROFEN
     Indication: Migraine
  17. TYLENOL [Concomitant]
     Active Substance: ACETAMINOPHEN
     Indication: Insomnia
  18. TYLENOL [Concomitant]
     Active Substance: ACETAMINOPHEN
     Indication: Pain
  19. ZANTAC [Concomitant]
     Active Substance: RANITIDINE HYDROCHLORIDE
     Dates: start: 2000, end: 2015
  20. ALKA-SELTZER [Concomitant]
     Active Substance: ANHYDROUS CITRIC ACID\ASPIRIN\SODIUM BICARBONATE
     Dates: start: 2000
  21. NIFEDIPINE [Concomitant]
     Active Substance: NIFEDIPINE
  22. TELMISARTAN [Concomitant]
     Active Substance: TELMISARTAN
  23. POTASSIUM CHLORIDE [Concomitant]
     Active Substance: POTASSIUM CHLORIDE
  24. CYCLOBENZAPRINE [Concomitant]
     Active Substance: CYCLOBENZAPRINE
  25. METRONIDAZOLE [Concomitant]
     Active Substance: METRONIDAZOLE
  26. CLONIDINE [Concomitant]
     Active Substance: CLONIDINE
  27. CEFTRIAXONE [Concomitant]
     Active Substance: CEFTRIAXONE
  28. HYDRODIURIL [Concomitant]
     Active Substance: HYDROCHLOROTHIAZIDE
  29. LOPRESSOR [Concomitant]
     Active Substance: METOPROLOL TARTRATE
  30. VICODIN [Concomitant]
     Active Substance: ACETAMINOPHEN\HYDROCODONE BITARTRATE
  31. FLONASE [Concomitant]
     Active Substance: FLUTICASONE PROPIONATE
  32. HYGROTON [Concomitant]
     Active Substance: CHLORTHALIDONE
  33. DEXTROSE [Concomitant]
     Active Substance: DEXTROSE
  34. TOBRADEX [Concomitant]
     Active Substance: DEXAMETHASONE\TOBRAMYCIN
  35. DILACOR [Concomitant]
  36. NITROFURANTOIN [Concomitant]
     Active Substance: NITROFURANTOIN
  37. LORAZEPAM [Concomitant]
     Active Substance: LORAZEPAM
  38. ZOLOFT [Concomitant]
     Active Substance: SERTRALINE HYDROCHLORIDE
  39. LOTENSIN [Concomitant]
     Active Substance: BENAZEPRIL HYDROCHLORIDE
  40. DIFLUCAN [Concomitant]
     Active Substance: FLUCONAZOLE
  41. DOCQLACE [Concomitant]
     Active Substance: DOCUSATE SODIUM
  42. CEPHALEXIN [Concomitant]
     Active Substance: CEPHALEXIN

REACTIONS (5)
  - Chronic kidney disease [Not Recovered/Not Resolved]
  - End stage renal disease [Unknown]
  - Nephrogenic anaemia [Unknown]
  - Renal failure [Unknown]
  - Swelling [Unknown]

NARRATIVE: CASE EVENT DATE: 20140324
